FAERS Safety Report 24120114 (Version 1)
Quarter: 2024Q3

REPORT INFORMATION
  Report Type: Spontaneous
  Country: US (occurrence: US)
  Receive Date: 20240722
  Receipt Date: 20240722
  Transmission Date: 20241016
  Serious: No
  Sender: ROCHE
  Company Number: US-ROCHE-10000024716

PATIENT
  Sex: Male

DRUGS (2)
  1. ERIVEDGE [Suspect]
     Active Substance: VISMODEGIB
     Indication: Squamous cell carcinoma of skin
     Route: 048
     Dates: start: 202310
  2. ERIVEDGE [Suspect]
     Active Substance: VISMODEGIB
     Indication: Lymphoma

REACTIONS (2)
  - Neuropathy peripheral [Unknown]
  - Off label use [Unknown]
